FAERS Safety Report 5914116-1 (Version None)
Quarter: 2008Q4

REPORT INFORMATION
  Report Type: 
  Country: None (occurrence: None)
  Receive Date: 20081009
  Receipt Date: 20080924
  Transmission Date: 20090506
  Serious: Yes (Life-Threatening, Hospitalization)
  Sender: FDA-Public Use
  Company Number: JP-SANOFI-SYNTHELABO-A01200809832

PATIENT
  Sex: Male
  Weight: 55 kg

DRUGS (9)
  1. FLUITRAN [Concomitant]
     Indication: HYPERTENSION
     Route: 048
     Dates: end: 20080913
  2. LANIRAPID [Concomitant]
     Indication: SUPRAVENTRICULAR TACHYCARDIA
     Route: 048
  3. DIOVAN [Concomitant]
     Indication: HYPERTENSION
     Route: 048
  4. NORVASC [Concomitant]
     Indication: HYPERTENSION
     Route: 048
  5. ADALAT [Concomitant]
     Indication: HYPERTENSION
     Route: 048
  6. OMEPRAZOLE [Concomitant]
     Indication: GASTRITIS
     Route: 048
     Dates: start: 20080715, end: 20080728
  7. ASPIRIN [Concomitant]
     Indication: ANGINA PECTORIS
     Route: 048
     Dates: start: 20080715
  8. PLAVIX [Suspect]
     Indication: PERCUTANEOUS CORONARY INTERVENTION
     Route: 048
     Dates: start: 20080715, end: 20080728
  9. PLAVIX [Suspect]
     Indication: ANGINA PECTORIS
     Route: 048
     Dates: start: 20080715, end: 20080728

REACTIONS (3)
  - LIVER DISORDER [None]
  - PYREXIA [None]
  - THROMBOCYTOPENIA [None]
